FAERS Safety Report 8172454-9 (Version None)
Quarter: 2012Q1

REPORT INFORMATION
  Report Type: 
  Country: None (occurrence: None)
  Receive Date: 20120227
  Receipt Date: 20120227
  Transmission Date: 20120608
  Serious: Yes (Hospitalization)
  Sender: FDA-Public Use
  Company Number: None

PATIENT
  Sex: Male
  Weight: 82.3 kg

DRUGS (1)
  1. TAXOTERE [Suspect]
     Dosage: 150 MG

REACTIONS (7)
  - CHEST PAIN [None]
  - SINUS BRADYCARDIA [None]
  - ASPARTATE AMINOTRANSFERASE DECREASED [None]
  - INAPPROPRIATE ANTIDIURETIC HORMONE SECRETION [None]
  - HYPONATRAEMIA [None]
  - ELECTROCARDIOGRAM T WAVE INVERSION [None]
  - ALANINE AMINOTRANSFERASE INCREASED [None]
